FAERS Safety Report 6400755-0 (Version None)
Quarter: 2009Q4

REPORT INFORMATION
  Report Type: 
  Country: None (occurrence: None)
  Receive Date: 20091008
  Receipt Date: 20090925
  Transmission Date: 20100525
  Serious: Yes (Hospitalization)
  Sender: FDA-Public Use
  Company Number: 1000009220

PATIENT
  Age: 69 Year
  Sex: Female
  Weight: 60 kg

DRUGS (5)
  1. FOSFOMYCIN (FOSFOMYCIN TROMETAMOL) (3 GRAM, GRANULATE) [Suspect]
     Dosage: (1 DOSAGE FORMS,ONCE),ORAL
     Route: 048
     Dates: start: 20080619, end: 20080619
  2. LANSOPRAZOLE [Suspect]
     Dosage: 30 MG (30 MG, 1 IN 1 D),ORAL
     Route: 048
     Dates: start: 20080619, end: 20080621
  3. DEBRIDAT [Suspect]
     Dosage: ORAL
     Route: 048
     Dates: start: 20080619, end: 20080621
  4. TEMESTA [Concomitant]
  5. DOLIPRANE [Concomitant]

REACTIONS (12)
  - ASTHENIA [None]
  - BLOOD LACTATE DEHYDROGENASE INCREASED [None]
  - CARDIAC DISORDER [None]
  - DECREASED APPETITE [None]
  - GASTROINTESTINAL DISORDER [None]
  - HYPOTENSION [None]
  - INFLAMMATION [None]
  - IRON DEFICIENCY ANAEMIA [None]
  - MALAISE [None]
  - PYREXIA [None]
  - TOXIC SKIN ERUPTION [None]
  - VOMITING [None]
